FAERS Safety Report 7884018-2 (Version None)
Quarter: 2011Q4

REPORT INFORMATION
  Report Type: 
  Country: None (occurrence: None)
  Receive Date: 20111102
  Receipt Date: 20111027
  Transmission Date: 20120403
  Serious: Yes (Hospitalization)
  Sender: FDA-Public Use
  Company Number: PHHY2011NL94722

PATIENT
  Sex: Female

DRUGS (6)
  1. ZOMETA [Suspect]
     Dosage: 4 MG/5 ML EVERY 42 DAYS
     Route: 042
     Dates: start: 20110912
  2. ZOMETA [Suspect]
     Dosage: 4 MG/ 5 ML, EVERY 42 DAYS
     Route: 042
     Dates: start: 20110801
  3. HORMONES [Concomitant]
  4. ZOMETA [Suspect]
     Indication: BREAST CANCER METASTATIC
     Dosage: 4 MG/5 ML EVERY 42 DAYS
     Route: 042
     Dates: start: 20100528
  5. CHEMOTHERAPEUTICS [Concomitant]
  6. INSULIN [Concomitant]

REACTIONS (1)
  - EPILEPSY [None]
